FAERS Safety Report 23940703 (Version 1)
Quarter: 2024Q2

REPORT INFORMATION
  Report Type: Spontaneous
  Country: GB (occurrence: GB)
  Receive Date: 20240605
  Receipt Date: 20240605
  Transmission Date: 20240716
  Serious: Yes (Other)
  Sender: FDA-Public Use
  Company Number: GB-MHRA-TPP1514765C22275880YC1716986865842

PATIENT
  Age: 61 Year
  Sex: Female
  Weight: 66 kg

DRUGS (18)
  1. PRAVASTATIN [Suspect]
     Active Substance: PRAVASTATIN
     Indication: Ill-defined disorder
     Route: 065
     Dates: start: 20240429
  2. BETESIL [Concomitant]
     Indication: Ill-defined disorder
     Dosage: APPLY ON NEW ERROSIONS DAILY FOR ONE MONTH AS P...
     Route: 065
     Dates: start: 20231025
  3. PREGABALIN [Concomitant]
     Active Substance: PREGABALIN
     Indication: Ill-defined disorder
     Dosage: ONE TO BE TAKEN TWICE A DAY - TAKE SECOND DOSE ...
     Route: 065
     Dates: start: 20231025
  4. CETRABEN [Concomitant]
     Indication: Ill-defined disorder
     Dosage: APPLY UPTO THREE TIMES DAILY WHEN REQUIRED
     Route: 065
     Dates: start: 20231025
  5. VENLAFAXINE [Concomitant]
     Active Substance: VENLAFAXINE HYDROCHLORIDE
     Indication: Ill-defined disorder
     Dosage: ONE TO BE TAKEN EACH DAY IN THE MORNING (DAILY ...
     Route: 065
     Dates: start: 20231025
  6. FEXOFENADINE [Concomitant]
     Active Substance: FEXOFENADINE HYDROCHLORIDE
     Indication: Ill-defined disorder
     Dosage: ONE TO BE TAKEN EACH DAY
     Route: 065
     Dates: start: 20231025
  7. AMLODIPINE [Concomitant]
     Active Substance: AMLODIPINE BESYLATE
     Indication: Ill-defined disorder
     Dosage: ONE TO BE TAKEN EACH DAY
     Route: 065
     Dates: start: 20231025
  8. CANDESARTAN [Concomitant]
     Active Substance: CANDESARTAN
     Indication: Ill-defined disorder
     Dosage: ONE TO BE TAKEN EACH DAY
     Route: 065
     Dates: start: 20231025
  9. NAPROXEN [Concomitant]
     Active Substance: NAPROXEN
     Indication: Ill-defined disorder
     Dosage: ONE TO BE TAKEN TWICE A DAY WITH FOOD
     Route: 065
     Dates: start: 20231025
  10. TEGRETOL [Concomitant]
     Active Substance: CARBAMAZEPINE
     Indication: Ill-defined disorder
     Dosage: ONE A DAY FOR TWO WEEKS AND THEN INCREASE TO TW...
     Route: 065
     Dates: start: 20231025
  11. ZOPICLONE [Concomitant]
     Active Substance: ZOPICLONE
     Indication: Ill-defined disorder
     Dosage: ONE TO BE TAKEN AT NIGHT- ENROLLED IN SLEEP STA...
     Route: 065
     Dates: start: 20231025
  12. COCODAMOL [Concomitant]
     Active Substance: ACETAMINOPHEN\CODEINE PHOSPHATE
     Indication: Ill-defined disorder
     Dosage: ONE TO BE TAKEN FOUR TIMES A DAY
     Route: 065
     Dates: start: 20231025
  13. ROSUVASTATIN [Concomitant]
     Active Substance: ROSUVASTATIN
     Indication: Ill-defined disorder
     Dosage: TIME INTERVAL: 0.33333333 WEEKS: ONE TABLET THREE TIMES A WEEK MON, WED AND FRI ...
     Route: 065
     Dates: start: 20240131, end: 20240514
  14. MELATONIN [Concomitant]
     Active Substance: MELATONIN
     Indication: Ill-defined disorder
     Dosage: START WITH ONE TABLET AT NIGHT - DOSE TAKEN 30-...
     Route: 065
     Dates: start: 20240514
  15. PRAVASTATIN [Concomitant]
     Active Substance: PRAVASTATIN
     Indication: Ill-defined disorder
     Dosage: TAKE ONE AT NIGHT FOR CHOLESTEROL REDUCTION
     Route: 065
     Dates: start: 20240514, end: 20240529
  16. EZETIMIBE [Concomitant]
     Active Substance: EZETIMIBE
     Indication: Ill-defined disorder
     Dosage: TAKE ONE DAILY FOR CHOLESTEROL REDUCTION - REPE...
     Route: 065
     Dates: start: 20240529
  17. IBUPROFEN [Concomitant]
     Active Substance: IBUPROFEN
     Indication: Ill-defined disorder
     Dosage: TIME INTERVAL: 0.33333333 DAYS: APPLY THREE TIMES DAILY AS REQUIRED
     Route: 065
     Dates: start: 20240220
  18. LANSOPRAZOLE [Concomitant]
     Active Substance: LANSOPRAZOLE
     Indication: Ill-defined disorder
     Dosage: ONE TO BE TAKEN EACH MORNING
     Route: 065
     Dates: start: 20231025

REACTIONS (1)
  - Pain in extremity [Recovering/Resolving]

NARRATIVE: CASE EVENT DATE: 20240429
